FAERS Safety Report 18884449 (Version 1)
Quarter: 2021Q1

REPORT INFORMATION
  Report Type: Other
  Country: CA (occurrence: CA)
  Receive Date: 20210211
  Receipt Date: 20210211
  Transmission Date: 20210420
  Serious: Yes (Other)
  Sender: FDA-Public Use
  Company Number: CA-CELLTRION INC.-2021CA001421

PATIENT

DRUGS (15)
  1. OMNARIS [Concomitant]
     Active Substance: CICLESONIDE
  2. AMIODARONE [Concomitant]
     Active Substance: AMIODARONE
  3. AMLODIPINE [Concomitant]
     Active Substance: AMLODIPINE BESYLATE
  4. BENADRYL [Concomitant]
     Active Substance: DIPHENHYDRAMINE HYDROCHLORIDE
  5. RISEDRONATE [Concomitant]
     Active Substance: RISEDRONATE SODIUM
  6. PREDNISONE. [Concomitant]
     Active Substance: PREDNISONE
  7. RITUXIMAB (UNKNOWN) [Suspect]
     Active Substance: RITUXIMAB
     Indication: RHEUMATOID ARTHRITIS
     Dosage: 1000 MG, 1 EVERY 15 DAYS
     Route: 041
  8. ELIQUIS [Concomitant]
     Active Substance: APIXABAN
  9. SITAGLIPTIN [Concomitant]
     Active Substance: SITAGLIPTIN
  10. CANDESARTAN. [Concomitant]
     Active Substance: CANDESARTAN
  11. SULFASALAZINE. [Concomitant]
     Active Substance: SULFASALAZINE
  12. TYLENOL [Concomitant]
     Active Substance: ACETAMINOPHEN
  13. METHYLPREDNISOLONE SODIUM SUCCINATE. [Concomitant]
     Active Substance: METHYLPREDNISOLONE SODIUM SUCCINATE
  14. ATORVASTATIN [Concomitant]
     Active Substance: ATORVASTATIN
  15. METOPROLOL. [Concomitant]
     Active Substance: METOPROLOL

REACTIONS (4)
  - Off label use [Unknown]
  - Cardiac valve disease [Unknown]
  - Syncope [Unknown]
  - Dizziness [Unknown]
